FAERS Safety Report 11544166 (Version 2)
Quarter: 2015Q4

REPORT INFORMATION
  Report Type: Spontaneous
  Country: JP (occurrence: JP)
  Receive Date: 20150924
  Receipt Date: 20151009
  Transmission Date: 20160304
  Serious: Yes (Other)
  Sender: FDA-Public Use
  Company Number: JP-009507513-1509JPN009356

PATIENT

DRUGS (2)
  1. TIENAM FOR INTRAVENOUS DRIP INFUSION [Suspect]
     Active Substance: CILASTATIN SODIUM\IMIPENEM
     Dosage: DAILY DOSAGE UNKNOWN
     Route: 041
  2. INTRALIPOS [Suspect]
     Active Substance: SOYBEAN OIL
     Dosage: DAILY DOSAGE UNKNOWN
     Route: 065

REACTIONS (2)
  - Infusion site extravasation [Not Recovered/Not Resolved]
  - Instillation site necrosis [Not Recovered/Not Resolved]

NARRATIVE: CASE EVENT DATE: 201509
